FAERS Safety Report 10121041 (Version 2)
Quarter: 2014Q2

REPORT INFORMATION
  Report Type: Report from Study
  Country: KR (occurrence: KR)
  Receive Date: 20140425
  Receipt Date: 20140519
  Transmission Date: 20141212
  Serious: Yes (Hospitalization)
  Sender: FDA-Public Use
  Company Number: KR-OTSUKA-US-2014-10810

PATIENT
  Age: 40 Year
  Sex: Female

DRUGS (16)
  1. BLINDED OPC-14597 [Suspect]
     Indication: BIPOLAR I DISORDER
     Dosage: 15 MG MILLIGRAM(S), UNK
     Route: 048
     Dates: start: 20140403, end: 20140423
  2. BLINDED OPC-14597 [Suspect]
     Dosage: 25 MG MILLIGRAM(S), UNK
     Route: 048
     Dates: start: 20140424
  3. PROPANOLOL [Concomitant]
     Indication: TREMOR
     Dosage: 20 MG MILLIGRAM(S), QD
     Route: 048
     Dates: start: 20140417, end: 20140422
  4. LORAZEPAM [Concomitant]
     Indication: BIPOLAR I DISORDER
     Dosage: 1 MG MILLIGRAM(S), QD
     Route: 048
     Dates: start: 20140327, end: 20140422
  5. LORAZEPAM [Concomitant]
     Indication: DEPRESSED MOOD
     Dosage: 0.5 MG MILLIGRAM(S), UNK
     Route: 048
     Dates: start: 20140423, end: 20140423
  6. LORAZEPAM [Concomitant]
     Dosage: 4 MG MILLIGRAM(S), UNK
     Route: 042
     Dates: start: 20140423, end: 20140423
  7. LORAZEPAM [Concomitant]
     Dosage: 1 MG MILLIGRAM(S), UNK
     Route: 048
     Dates: start: 20140424
  8. LORAZEPAM [Concomitant]
     Dosage: 0.5 MG MILLIGRAM(S), UNK
     Route: 048
     Dates: start: 20140425, end: 20140501
  9. LORAZEPAM [Concomitant]
     Dosage: 0.5 MG MILLIGRAM(S), UNK
     Route: 048
     Dates: start: 20140503, end: 20140505
  10. LORAZEPAM [Concomitant]
     Dosage: 1 MG MILLIGRAM(S), UNK
     Route: 048
     Dates: start: 20140506, end: 20140506
  11. LORAZEPAM [Concomitant]
     Dosage: 0.5 MG MILLIGRAM(S), UNK
     Route: 048
     Dates: start: 20140507, end: 20140507
  12. VALPROIC ACID [Concomitant]
     Indication: BIPOLAR I DISORDER
     Dosage: 500 MG MILLIGRAM(S), UNK
     Route: 048
     Dates: start: 20140410, end: 20140422
  13. VALPROIC ACID [Concomitant]
     Dosage: 500 MG MILLIGRAM(S), UNK
     Route: 048
     Dates: start: 20140424, end: 20140427
  14. VALPROIC ACID [Concomitant]
     Dosage: 1000 MG MILLIGRAM(S), UNK
     Route: 048
     Dates: start: 20140428, end: 20140501
  15. VALPROIC ACID [Concomitant]
     Dosage: 750 MG MILLIGRAM(S), UNK
     Route: 048
     Dates: start: 20140502, end: 20140507
  16. VALPROIC ACID [Concomitant]
     Dosage: 500 MG MILLIGRAM(S), UNK
     Route: 048
     Dates: start: 20140508

REACTIONS (1)
  - Depressed mood [Not Recovered/Not Resolved]
